FAERS Safety Report 20913750 (Version 3)
Quarter: 2022Q3

REPORT INFORMATION
  Report Type: Spontaneous
  Country: US (occurrence: US)
  Receive Date: 20220604
  Receipt Date: 20220714
  Transmission Date: 20221026
  Serious: No
  Sender: FDA-Public Use
  Company Number: US-BRISTOL-MYERS SQUIBB COMPANY-2022-052549

PATIENT
  Age: 71 Year
  Sex: Male
  Weight: 31.75 kg

DRUGS (3)
  1. REVLIMID [Suspect]
     Active Substance: LENALIDOMIDE
     Indication: Plasma cell myeloma
     Route: 048
  2. REVLIMID [Suspect]
     Active Substance: LENALIDOMIDE
     Dosage: FREQ:21D ON 7D OFF
     Route: 048
     Dates: start: 20220509
  3. REVLIMID [Suspect]
     Active Substance: LENALIDOMIDE
     Dosage: FREQUENCY-  21D ON 7D OFF
     Route: 048
     Dates: start: 20220509

REACTIONS (3)
  - Asthenia [Recovering/Resolving]
  - Feeling abnormal [Unknown]
  - Fatigue [Recovering/Resolving]
